FAERS Safety Report 15758699 (Version 1)
Quarter: 2018Q4

REPORT INFORMATION
  Report Type: Spontaneous
  Country: FR (occurrence: FR)
  Receive Date: 20181225
  Receipt Date: 20181225
  Transmission Date: 20190205
  Serious: Yes (Hospitalization)
  Sender: FDA-Public Use
  Company Number: PHHY2018FR192592

PATIENT
  Age: 46 Year
  Sex: Female
  Weight: 58 kg

DRUGS (4)
  1. ATENOLOL. [Suspect]
     Active Substance: ATENOLOL
     Indication: SUICIDE ATTEMPT
     Dosage: 15 ?G/L, ONCE/SINGLE
     Route: 048
     Dates: start: 20170603, end: 20170603
  2. TERAZIN 2MG [Suspect]
     Active Substance: TERAZOSIN HYDROCHLORIDE
     Indication: SUICIDE ATTEMPT
     Dosage: 30 ?G/L, ONCE/SINGLE
     Route: 048
     Dates: start: 20170603, end: 20170603
  3. MERCALM [Suspect]
     Active Substance: CAFFEINE\DIMENHYDRINATE
     Indication: SUICIDE ATTEMPT
     Dosage: 15 ?G/L, ONCE/SINGLE
     Route: 048
     Dates: start: 20170603, end: 20170603
  4. SERESTA [Suspect]
     Active Substance: OXAZEPAM
     Indication: SUICIDE ATTEMPT
     Dosage: 15 ?G/L, ONCE/SINGLE
     Route: 048
     Dates: start: 20170603, end: 20170603

REACTIONS (4)
  - Toxicity to various agents [Recovered/Resolved]
  - Electrocardiogram QT prolonged [Recovered/Resolved]
  - Altered state of consciousness [Recovered/Resolved]
  - Electrocardiogram QRS complex abnormal [Recovered/Resolved]

NARRATIVE: CASE EVENT DATE: 20170603
